FAERS Safety Report 8517810-1 (Version None)
Quarter: 2012Q3

REPORT INFORMATION
  Report Type: 
  Country: None (occurrence: None)
  Receive Date: 20120718
  Receipt Date: 20120713
  Transmission Date: 20120928
  Serious: Yes (Other)
  Sender: FDA-Public Use
  Company Number: US-BAYER-2012-050877

PATIENT
  Age: 84 Year
  Sex: Female
  Weight: 50 kg

DRUGS (5)
  1. VITAMIN TAB [Concomitant]
  2. LIPITOR [Concomitant]
  3. ALEVE (CAPLET) [Suspect]
     Dosage: 1 DF, UNK
     Route: 048
     Dates: start: 20120514, end: 20120516
  4. SYNTHROID [Concomitant]
  5. ASPIRIN [Concomitant]
     Indication: ISCHAEMIC HEART DISEASE PROPHYLAXIS

REACTIONS (2)
  - URINARY BLADDER HAEMORRHAGE [None]
  - GASTRIC HAEMORRHAGE [None]
